FAERS Safety Report 13637028 (Version 1)
Quarter: 2017Q2

REPORT INFORMATION
  Report Type: Spontaneous
  Country: US (occurrence: US)
  Receive Date: 20170609
  Receipt Date: 20170609
  Transmission Date: 20170830
  Serious: No
  Sender: FDA-Public Use
  Company Number: US-GLAXOSMITHKLINE-US2017GSK087698

PATIENT

DRUGS (2)
  1. CEFTIN [Suspect]
     Active Substance: CEFUROXIME AXETIL
  2. ZITHROMAX [Concomitant]
     Active Substance: AZITHROMYCIN DIHYDRATE

REACTIONS (1)
  - Drug hypersensitivity [Unknown]
